FAERS Safety Report 20390327 (Version 6)
Quarter: 2023Q1

REPORT INFORMATION
  Report Type: Report from Study
  Country: DE (occurrence: None)
  Receive Date: 20220128
  Receipt Date: 20230306
  Transmission Date: 20230417
  Serious: Yes (Hospitalization)
  Sender: FDA-Public Use
  Company Number: DE-ROCHE-3003894

PATIENT
  Age: 46 Year
  Sex: Female
  Weight: 63 kg

DRUGS (14)
  1. ATEZOLIZUMAB [Suspect]
     Active Substance: ATEZOLIZUMAB
     Indication: Triple negative breast cancer
     Dosage: DATE OF LAST DOSE PRIOR TO SAE: 30/NOV/2021?DATE OF LAST DOSE PRIOR TO SAE: 11/JAN/2022
     Route: 042
     Dates: start: 20211019
  2. PACLITAXEL [Suspect]
     Active Substance: PACLITAXEL
     Indication: Triple negative breast cancer
     Dosage: DATE OF LAST DOSE PRIOR TO SAE: 14/DEC/2021?DATE OF LAST DOSE PRIOR TO SAE: 11/JAN/2022?DATE OF LAST
     Route: 042
     Dates: start: 20211109
  3. CARBOPLATIN [Suspect]
     Active Substance: CARBOPLATIN
     Indication: Triple negative breast cancer
     Dosage: DATE OF LAST DOSE PRIOR TO SAE: 14/DEC/2021?DATE OF LAST DOSE PRIOR TO SAE: 11/JAN/2022?DATE OF LAST
     Route: 042
     Dates: start: 20211109
  4. ONDANSETRON [Concomitant]
     Active Substance: ONDANSETRON
     Dates: start: 20211005
  5. MCP [Concomitant]
     Active Substance: METOCLOPRAMIDE HYDROCHLORIDE
     Dates: start: 20211005
  6. IBUPROFEN [Concomitant]
     Active Substance: IBUPROFEN
     Dates: start: 20211112
  7. FILGRASTIM [Concomitant]
     Active Substance: FILGRASTIM
     Dosage: 30000000 IE
     Dates: start: 20211205, end: 20211205
  8. FILGRASTIM [Concomitant]
     Active Substance: FILGRASTIM
     Dosage: 30000000 IE
     Dates: start: 20211211, end: 20211212
  9. FILGRASTIM [Concomitant]
     Active Substance: FILGRASTIM
     Dosage: 30000000 IE
     Dates: start: 20211128, end: 20211128
  10. FILGRASTIM [Concomitant]
     Active Substance: FILGRASTIM
     Dosage: 30000000 IE
     Dates: start: 20211121, end: 20211121
  11. FILGRASTIM [Concomitant]
     Active Substance: FILGRASTIM
     Dosage: 30000000 IE
     Dates: start: 20211225, end: 20211226
  12. MOVICOL [Concomitant]
     Active Substance: POLYETHYLENE GLYCOL 3350\POTASSIUM CHLORIDE\SODIUM BICARBONATE\SODIUM CHLORIDE
     Dosage: 1 BAG
     Dates: start: 20211227
  13. HUMAN RED BLOOD CELL [Concomitant]
     Active Substance: HUMAN RED BLOOD CELL
     Dosage: 2 PACKS
     Dates: start: 20211230, end: 20211230
  14. HUMAN RED BLOOD CELL [Concomitant]
     Active Substance: HUMAN RED BLOOD CELL
     Dosage: 2 PACKS
     Dates: start: 20220113, end: 20220114

REACTIONS (4)
  - General physical health deterioration [Recovered/Resolved]
  - Pyrexia [Recovered/Resolved]
  - Lipase increased [Recovered/Resolved]
  - Infection [Recovered/Resolved]

NARRATIVE: CASE EVENT DATE: 20211217
